FAERS Safety Report 5313499-3 (Version None)
Quarter: 2007Q2

REPORT INFORMATION
  Report Type: 
  Country: None (occurrence: None)
  Receive Date: 20070424
  Receipt Date: 20070416
  Transmission Date: 20071010
  Serious: Yes (Other)
  Sender: FDA-Public Use
  Company Number: 2007JP001292

PATIENT
  Age: 83 Year
  Sex: Female

DRUGS (5)
  1. VESICARE [Suspect]
     Indication: HYPERTONIC BLADDER
     Dosage: 5 MG, UID/QD, ORAL
     Route: 048
     Dates: start: 20070206, end: 20070320
  2. RABEPRAZOLE SODIUM [Concomitant]
  3. ZOLPIDEM TARTRATE [Concomitant]
  4. HUSCODE (CHLORPHENAMINE MALEATE, DIHYDROCODEINE PHOSPHATE) [Concomitant]
  5. LOXONIN (LOXOPROFEN SODIUM) [Concomitant]

REACTIONS (8)
  - COUGH [None]
  - DECREASED APPETITE [None]
  - DRY MOUTH [None]
  - DYSPHONIA [None]
  - HEADACHE [None]
  - INSOMNIA [None]
  - PHARYNGOLARYNGEAL DISCOMFORT [None]
  - TONGUE DISORDER [None]
